FAERS Safety Report 8826221 (Version 1)
Quarter: 2012Q4

REPORT INFORMATION
  Report Type: 
  Country: US (occurrence: US)
  Receive Date: 20121005
  Receipt Date: 20121005
  Transmission Date: 20130627
  Serious: No
  Sender: FDA-Public Use
  Company Number: US-BAYER-2012-104422

PATIENT
  Age: 54 Year
  Sex: Female
  Weight: 87.98 kg

DRUGS (17)
  1. BETASERON [Suspect]
     Dosage: 0.3 mg, QOD
     Route: 058
  2. ATENOLOL [Concomitant]
  3. COQ10 [Concomitant]
  4. CYMBALTA [Concomitant]
  5. FISH OIL [Concomitant]
  6. IBUPROFEN [Concomitant]
  7. KLONOPIN [Concomitant]
  8. LASIX [Concomitant]
  9. MVI [Concomitant]
  10. NEURONTIN [Concomitant]
  11. POTASSIUM [Concomitant]
  12. PROBIOTICS [Concomitant]
  13. SIMVASTATIN [Concomitant]
  14. TOPAMAX [Concomitant]
  15. TRAMADOL [Concomitant]
  16. TRAZODONE [Concomitant]
  17. ZYRTEC [Concomitant]

REACTIONS (4)
  - Tremor [None]
  - Influenza [None]
  - Pain [None]
  - Pyrexia [None]
